FAERS Safety Report 9702578 (Version 1)
Quarter: 2013Q4

REPORT INFORMATION
  Report Type: Spontaneous
  Country: ES (occurrence: ES)
  Receive Date: 20131121
  Receipt Date: 20131121
  Transmission Date: 20140711
  Serious: Yes (Other)
  Sender: FDA-Public Use
  Company Number: PHHY2013ES131982

PATIENT
  Age: 71 Year
  Sex: Male

DRUGS (2)
  1. LEVOFLOXACIN [Suspect]
  2. RIFAMPICIN [Concomitant]

REACTIONS (2)
  - Pigmentation disorder [Recovering/Resolving]
  - Pruritus [Unknown]
